FAERS Safety Report 4888898-4 (Version None)
Quarter: 2006Q1

REPORT INFORMATION
  Report Type: 
  Country: None (occurrence: None)
  Receive Date: 20060123
  Receipt Date: 20051005
  Transmission Date: 20060701
  Serious: Yes (Hospitalization)
  Sender: FDA-Public Use
  Company Number: US-MERCK-0510USA04442

PATIENT
  Age: 63 Year
  Sex: Male
  Weight: 82 kg

DRUGS (4)
  1. VIOXX [Suspect]
     Indication: BACK PAIN
     Route: 048
     Dates: start: 20010721, end: 20040930
  2. VIOXX [Suspect]
     Indication: SPINAL OSTEOARTHRITIS
     Route: 048
     Dates: start: 20010721, end: 20040930
  3. [THERAPY UNSPECIFIED] [Concomitant]
     Indication: SLEEP DISORDER
     Route: 065
  4. ASPIRIN [Concomitant]
     Route: 065

REACTIONS (3)
  - ARTERIOSCLEROSIS [None]
  - DEPRESSION [None]
  - MYOCARDIAL INFARCTION [None]
